FAERS Safety Report 9458976 (Version 1)
Quarter: 2013Q3

REPORT INFORMATION
  Report Type: Spontaneous
  Country: US (occurrence: US)
  Receive Date: 20130814
  Receipt Date: 20130814
  Transmission Date: 20140515
  Serious: Yes (Other)
  Sender: FDA-Public Use
  Company Number: CHPA2013US012704

PATIENT
  Age: 73 Year
  Sex: Male

DRUGS (5)
  1. PRIVATE LABEL [Suspect]
     Indication: SMOKING CESSATION THERAPY
     Dosage: 21 MG, QD
     Route: 062
     Dates: start: 20130624
  2. SPIRIVA [Concomitant]
     Indication: CHRONIC OBSTRUCTIVE PULMONARY DISEASE
     Dosage: UNK, UNK
     Dates: start: 2011
  3. MINOXIDIL [Concomitant]
     Indication: HYPERTENSION
     Dosage: 10 MG, UNK
  4. ATENOLOL [Concomitant]
     Indication: HYPERTENSION
     Dosage: 20 MG, UNK
  5. MOEXIPRIL [Concomitant]
     Indication: CARDIAC DISORDER
     Dosage: UNK, UNK

REACTIONS (4)
  - Hypertension [Recovering/Resolving]
  - Hangover [Recovered/Resolved]
  - Wrong technique in drug usage process [Unknown]
  - Irritability [Recovered/Resolved]
